FAERS Safety Report 9486256 (Version 1)
Quarter: 2013Q3

REPORT INFORMATION
  Report Type: Spontaneous
  Country: US (occurrence: US)
  Receive Date: 20130829
  Receipt Date: 20130829
  Transmission Date: 20140515
  Serious: No
  Sender: FDA-Public Use
  Company Number: US-PFIZER INC-2013244348

PATIENT
  Sex: Female

DRUGS (1)
  1. DETROL LA [Suspect]
     Indication: NEUROGENIC BLADDER
     Dosage: 4 MG, 1X/DAY
     Dates: start: 20130820

REACTIONS (1)
  - Dizziness [Recovered/Resolved]
